FAERS Safety Report 24143902 (Version 1)
Quarter: 2024Q3

REPORT INFORMATION
  Report Type: Spontaneous
  Country: US (occurrence: US)
  Receive Date: 20240727
  Receipt Date: 20240727
  Transmission Date: 20241016
  Serious: Yes (Hospitalization)
  Sender: NOVITIUM PHARMA
  Company Number: US-NOVITIUMPHARMA-2024USNVP01390

PATIENT
  Age: 58 Year
  Sex: Female

DRUGS (4)
  1. ACYCLOVIR [Suspect]
     Active Substance: ACYCLOVIR
     Indication: Herpes simplex oesophagitis
  2. FOSCARNET [Concomitant]
     Active Substance: FOSCARNET
     Indication: Herpes simplex oesophagitis
  3. PANTOPRAZOLE [Concomitant]
     Active Substance: PANTOPRAZOLE
     Indication: Herpes simplex oesophagitis
  4. SUCRALFATE [Concomitant]
     Active Substance: SUCRALFATE
     Indication: Herpes simplex oesophagitis

REACTIONS (1)
  - Drug ineffective [Unknown]
